FAERS Safety Report 15918887 (Version 3)
Quarter: 2019Q1

REPORT INFORMATION
  Report Type: Report from Study
  Country: IT (occurrence: IT)
  Receive Date: 20190205
  Receipt Date: 20190328
  Transmission Date: 20190417
  Serious: Yes (Other)
  Sender: FDA-Public Use
  Company Number: IT-MYLANLABS-2019M1009330

PATIENT
  Age: 43 Year
  Sex: Female

DRUGS (2)
  1. BRUFEN 600 MG GRANULATO EFFERVESCENTE [Suspect]
     Active Substance: IBUPROFEN
     Indication: ANTIINFLAMMATORY THERAPY
     Dosage: 1 DOSAGE FORM, TOTAL
     Route: 048
     Dates: start: 20180721, end: 20180721
  2. BRUFEN 600 MG GRANULATO EFFERVESCENTE [Suspect]
     Active Substance: IBUPROFEN
     Indication: ABDOMINAL PAIN UPPER

REACTIONS (4)
  - Diarrhoea [Recovering/Resolving]
  - Abdominal pain [Recovering/Resolving]
  - Paraesthesia oral [Recovering/Resolving]
  - Urticaria [Recovering/Resolving]

NARRATIVE: CASE EVENT DATE: 20180723
